FAERS Safety Report 7355028-9 (Version None)
Quarter: 2011Q1

REPORT INFORMATION
  Report Type: 
  Country: None (occurrence: None)
  Receive Date: 20110316
  Receipt Date: 20110307
  Transmission Date: 20110831
  Serious: Yes (Life-Threatening, Hospitalization)
  Sender: FDA-Public Use
  Company Number: JP-NOVOPROD-322117

PATIENT
  Age: 54 Year
  Sex: Female
  Weight: 48 kg

DRUGS (2)
  1. VICTOZA [Suspect]
     Indication: TYPE 2 DIABETES MELLITUS
     Dosage: 0.3 MG, QD AT BREAKFAST
     Route: 058
     Dates: start: 20110114
  2. VICTOZA [Suspect]
     Dosage: 0.6 MG, UNK
     Route: 058
     Dates: start: 20110121, end: 20110123

REACTIONS (1)
  - DIABETIC KETOACIDOSIS [None]
